FAERS Safety Report 9268863 (Version 1)
Quarter: 2013Q2

REPORT INFORMATION
  Report Type: Spontaneous
  Country: PL (occurrence: PL)
  Receive Date: 20130503
  Receipt Date: 20130503
  Transmission Date: 20140414
  Serious: Yes (Hospitalization, Other)
  Sender: FDA-Public Use
  Company Number: PHHY2013PL042621

PATIENT
  Age: 25 Year
  Sex: Female

DRUGS (2)
  1. LAMOTRIGINE [Suspect]
     Indication: EPILEPSY
  2. VALPROIC ACID [Concomitant]

REACTIONS (12)
  - Drug reaction with eosinophilia and systemic symptoms [Unknown]
  - Erythema [Unknown]
  - Oedema peripheral [Unknown]
  - Generalised erythema [Unknown]
  - Rash papular [Unknown]
  - Chills [Unknown]
  - Pyrexia [Unknown]
  - Pruritus [Unknown]
  - Burning sensation [Unknown]
  - Skin lesion [Recovering/Resolving]
  - Face oedema [Unknown]
  - Rash maculo-papular [Unknown]
